FAERS Safety Report 24262988 (Version 1)
Quarter: 2024Q3

REPORT INFORMATION
  Report Type: Spontaneous
  Country: ES (occurrence: ES)
  Receive Date: 20240829
  Receipt Date: 20240829
  Transmission Date: 20241016
  Serious: Yes (Death, Other)
  Sender: AMGEN
  Company Number: ES-AMGEN-ESPSP2024168758

PATIENT
  Age: 71 Year
  Sex: Male

DRUGS (6)
  1. FILGRASTIM [Suspect]
     Active Substance: FILGRASTIM
     Indication: Chloroma
     Dosage: 300 MICROGRAM/SQ. METER (ON DAYS 1-5)
     Route: 065
     Dates: start: 201601
  2. FLUDARABINE [Suspect]
     Active Substance: FLUDARABINE PHOSPHATE
     Indication: Chloroma
     Dosage: 30 MILLIGRAM/SQ. METER
     Route: 065
     Dates: start: 201601
  3. FLUDARABINE [Suspect]
     Active Substance: FLUDARABINE PHOSPHATE
     Dosage: 40 MILLIGRAM/SQ. METER (DAYS 1-4)
     Route: 048
     Dates: start: 20160404
  4. CYTARABINE [Suspect]
     Active Substance: CYTARABINE
     Indication: Chloroma
     Dosage: 2 GRAM PER SQUARE METRE  (ON DAY 1-4)
     Route: 065
     Dates: start: 201601
  5. CYTARABINE [Suspect]
     Active Substance: CYTARABINE
     Dosage: 75 MILLIGRAM/SQ. METER (DAYS 1-4)
     Route: 058
     Dates: start: 20160404
  6. IDARUBICIN [Suspect]
     Active Substance: IDARUBICIN
     Indication: Chloroma
     Dosage: 10 MILLIGRAM/SQ. METER (ON DAYS 1-3)
     Route: 065
     Dates: start: 201601

REACTIONS (4)
  - Nervous system disorder [Fatal]
  - Chloroma [Unknown]
  - Rectal haemorrhage [Unknown]
  - Disseminated intravascular coagulation [Unknown]

NARRATIVE: CASE EVENT DATE: 20160401
